FAERS Safety Report 5193897-1 (Version None)
Quarter: 2006Q4

REPORT INFORMATION
  Report Type: 
  Country: None (occurrence: None)
  Receive Date: 20061222
  Receipt Date: 20061220
  Transmission Date: 20070319
  Serious: Yes (Hospitalization)
  Sender: FDA-Public Use
  Company Number: SP01046

PATIENT
  Age: 87 Year
  Sex: Male
  Weight: 61.2356 kg

DRUGS (3)
  1. XIFAXAN [Suspect]
     Indication: ENTEROCOLITIS INFECTIOUS
     Dosage: 800 MG (400 MG, 2 IN 1 D), ORAL
     Route: 048
     Dates: start: 20061031, end: 20061109
  2. VANCOMYCIN [Suspect]
     Indication: ENTEROCOLITIS INFECTIOUS
     Dosage: 750 MG (250 MG, 3 IN 1 D), ORAL
     Route: 048
     Dates: start: 20061031, end: 20061109
  3. METRONIDAZOLE [Suspect]
     Indication: ENTEROCOLITIS INFECTIOUS
     Dosage: 750 MG (250 MG, 3 IN  1 D), ORAL
     Route: 048
     Dates: start: 20061031, end: 20061109

REACTIONS (6)
  - AUTOIMMUNE DISORDER [None]
  - CEREBRAL HAEMORRHAGE [None]
  - POST PROCEDURAL COMPLICATION [None]
  - PURPURA [None]
  - SUBARACHNOID HAEMORRHAGE [None]
  - THROMBOCYTOPENIA [None]
